FAERS Safety Report 11645365 (Version 2)
Quarter: 2015Q4

REPORT INFORMATION
  Report Type: Spontaneous
  Country: US (occurrence: US)
  Receive Date: 20151020
  Receipt Date: 20151027
  Transmission Date: 20160304
  Serious: Yes (Hospitalization)
  Sender: FDA-Public Use
  Company Number: US-NPS_PHARMACEUTICALS-002630

PATIENT
  Sex: Female

DRUGS (2)
  1. TPN [Concomitant]
     Active Substance: AMINO ACIDS\DEXTROSE\ELECTROLYTES NOS\SOYBEAN OIL
     Indication: MEDICAL DIET
     Dosage: DF
  2. GATTEX [Suspect]
     Active Substance: TEDUGLUTIDE\WATER
     Indication: SHORT-BOWEL SYNDROME
     Dosage: [DF] EVERY OTHER DAY
     Route: 058
     Dates: start: 20131002

REACTIONS (3)
  - Drug dose omission [Unknown]
  - Device related infection [Unknown]
  - Off label use [Unknown]

NARRATIVE: CASE EVENT DATE: 2015
